FAERS Safety Report 13902463 (Version 1)
Quarter: 2017Q3

REPORT INFORMATION
  Report Type: Spontaneous
  Country: US (occurrence: US)
  Receive Date: 20170824
  Receipt Date: 20170824
  Transmission Date: 20171127
  Serious: Yes (Hospitalization)
  Sender: FDA-Public Use
  Company Number: US-ROCHE-675623

PATIENT
  Age: 53 Year
  Sex: Female

DRUGS (3)
  1. TAXOTERE [Suspect]
     Active Substance: DOCETAXEL
     Indication: BREAST CANCER METASTATIC
     Route: 065
  2. HERCEPTIN [Suspect]
     Active Substance: TRASTUZUMAB
     Indication: BREAST CANCER METASTATIC
     Dosage: INDICATION REPORTED: MBC.
     Route: 065
  3. CARBOPLATIN. [Concomitant]
     Active Substance: CARBOPLATIN

REACTIONS (11)
  - Neutrophil count decreased [Unknown]
  - Rash erythematous [Unknown]
  - Sinus congestion [Unknown]
  - No adverse event [Unknown]
  - White blood cell count decreased [Unknown]
  - Bone pain [Unknown]
  - Medication error [Unknown]
  - Nausea [Unknown]
  - Rhinorrhoea [Unknown]
  - Fatigue [Unknown]
  - Tumour marker test [Unknown]

NARRATIVE: CASE EVENT DATE: 20110330
